FAERS Safety Report 5747838-6 (Version None)
Quarter: 2008Q2

REPORT INFORMATION
  Report Type: 
  Country: None (occurrence: None)
  Receive Date: 20080523
  Receipt Date: 20080513
  Transmission Date: 20081010
  Serious: Yes (Hospitalization, Other)
  Sender: FDA-Public Use
  Company Number: US-ROCHE-502764

PATIENT
  Age: 43 Year
  Sex: Male

DRUGS (12)
  1. VALIUM [Suspect]
     Indication: ANXIETY
     Dosage: OTHER INDICATION:MUSCLE SPASMS, INSOMNIA, BURNING OF SKIN, NEUROLOGICAL CONDITIONS AND CHRONIC PAIN
     Route: 048
  2. VALIUM [Suspect]
     Route: 048
  3. DIAZEPAM [Suspect]
     Indication: ANXIETY
     Dosage: FORM: PILLS; 120 DOSES OVER 2-3 DAYS; WAS PRESCRIBED MYLAN DIAZEPAM IN NOV 2007.
     Route: 065
  4. MORPHINE [Concomitant]
  5. MS CONTIN [Concomitant]
  6. TRICOR [Concomitant]
  7. VITAMIN B [Concomitant]
  8. DEMEROL [Concomitant]
  9. ATIVAN [Concomitant]
  10. GLIMEPIRIDE [Concomitant]
  11. OMACOR [Concomitant]
  12. FLAXSEED [Concomitant]

REACTIONS (12)
  - DIABETES MELLITUS [None]
  - DRUG EFFECT DECREASED [None]
  - DRUG INEFFECTIVE [None]
  - DRUG TOLERANCE [None]
  - INSOMNIA [None]
  - NERVOUS SYSTEM DISORDER [None]
  - NO ADVERSE EVENT [None]
  - OVERDOSE [None]
  - PARANOIA [None]
  - PHARMACEUTICAL PRODUCT COUNTERFEIT [None]
  - SKIN BURNING SENSATION [None]
  - WEIGHT DECREASED [None]
